FAERS Safety Report 7357738-6 (Version None)
Quarter: 2011Q1

REPORT INFORMATION
  Report Type: 
  Country: None (occurrence: None)
  Receive Date: 20110317
  Receipt Date: 20110308
  Transmission Date: 20110831
  Serious: Yes (Death, Other)
  Sender: FDA-Public Use
  Company Number: US-JNJFOC-960514-107051943

PATIENT
  Age: 34 Year
  Sex: Female

DRUGS (1)
  1. ULTRAM [Suspect]
     Indication: PAIN
     Route: 048
     Dates: start: 19950901, end: 19960401

REACTIONS (6)
  - DEATH [None]
  - CONVULSION [None]
  - PULMONARY OEDEMA [None]
  - NERVOUSNESS [None]
  - DRUG EFFECT DECREASED [None]
  - TREMOR [None]
